FAERS Safety Report 5871011-4 (Version None)
Quarter: 2008Q3

REPORT INFORMATION
  Report Type: 
  Country: None (occurrence: None)
  Receive Date: 20080904
  Receipt Date: 20080825
  Transmission Date: 20090109
  Serious: Yes (Other)
  Sender: FDA-Public Use
  Company Number: US-BAYER-200824015NA

PATIENT
  Age: 35 Year
  Sex: Female

DRUGS (1)
  1. ULTRAVIST 300 [Suspect]
     Indication: ANGIOGRAM
     Dosage: TOTAL DAILY DOSE: 40 ML  UNIT DOSE: 50 ML
     Route: 042
     Dates: start: 20080516, end: 20080516

REACTIONS (7)
  - EYELID OEDEMA [None]
  - LIP OEDEMA [None]
  - LOCALISED OEDEMA [None]
  - PRURITUS [None]
  - RASH MACULAR [None]
  - SWELLING FACE [None]
  - URTICARIA [None]
